FAERS Safety Report 8554620-3 (Version None)
Quarter: 2012Q3

REPORT INFORMATION
  Report Type: 
  Country: None (occurrence: None)
  Receive Date: 20120731
  Receipt Date: 20120723
  Transmission Date: 20120928
  Serious: Yes (Hospitalization)
  Sender: FDA-Public Use
  Company Number: CA-JNJFOC-20120712828

PATIENT
  Sex: Male

DRUGS (7)
  1. PERCOCET [Concomitant]
     Route: 065
  2. AZATHIOPRINE [Concomitant]
     Route: 065
  3. VITAMIN D [Concomitant]
     Route: 065
  4. REMICADE [Suspect]
     Indication: CROHN'S DISEASE
     Route: 042
     Dates: start: 20120618
  5. REMICADE [Suspect]
     Dosage: 400 (UNITS UNSPECIFIED)
     Route: 042
     Dates: start: 20120608
  6. PANTOPRAZOLE [Concomitant]
     Route: 065
  7. PREDNISONE [Concomitant]
     Route: 065

REACTIONS (1)
  - SURGERY [None]
